FAERS Safety Report 9012838 (Version 1)
Quarter: 2013Q1

REPORT INFORMATION
  Report Type: Spontaneous
  Country: US (occurrence: US)
  Receive Date: 20130114
  Receipt Date: 20130114
  Transmission Date: 20140127
  Serious: No
  Sender: FDA-Public Use
  Company Number: US-009507513-1301USA002575

PATIENT
  Age: 74 Year
  Sex: Female

DRUGS (2)
  1. COSOPT [Suspect]
     Indication: INTRAOCULAR PRESSURE INCREASED
     Dosage: 2/0.5 %, BID
     Route: 047
     Dates: start: 20121211
  2. HYDROCHLOROT [Concomitant]

REACTIONS (5)
  - Skin disorder [Not Recovered/Not Resolved]
  - Eye irritation [Not Recovered/Not Resolved]
  - Accidental exposure to product [Unknown]
  - Drug dose omission [Unknown]
  - Product quality issue [Unknown]
